FAERS Safety Report 7528709-1 (Version None)
Quarter: 2011Q2

REPORT INFORMATION
  Report Type: 
  Country: None (occurrence: None)
  Receive Date: 20110607
  Receipt Date: 20110601
  Transmission Date: 20111010
  Serious: Yes (Other)
  Sender: FDA-Public Use
  Company Number: JP-PFIZER INC-2011117861

PATIENT
  Age: 66 Year
  Sex: Male

DRUGS (1)
  1. CLINDAMYCIN HCL [Suspect]
     Route: 042

REACTIONS (2)
  - RENAL DISORDER [None]
  - NEPHROTIC SYNDROME [None]
